FAERS Safety Report 5733281-2 (Version None)
Quarter: 2008Q2

REPORT INFORMATION
  Report Type: 
  Country: None (occurrence: None)
  Receive Date: 20080509
  Receipt Date: 20080428
  Transmission Date: 20081010
  Serious: Yes (Death)
  Sender: FDA-Public Use
  Company Number: B0518106A

PATIENT
  Age: 69 Year
  Sex: Female

DRUGS (7)
  1. TYKERB [Suspect]
     Dosage: 1250MG PER DAY
     Route: 048
     Dates: start: 20071201, end: 20080401
  2. LIV 52 [Concomitant]
     Dosage: 250MG PER DAY
  3. UNKNOWN MEDICATION [Concomitant]
  4. BECOSULES [Concomitant]
  5. CALCIUM SUPPLEMENT [Concomitant]
     Dosage: 1MG AT NIGHT
  6. UNKNOWN DRUG [Concomitant]
  7. DEXAMETHASONE [Concomitant]
     Dosage: 4MG TWICE PER DAY
     Route: 048

REACTIONS (4)
  - BREAST CANCER METASTATIC [None]
  - DYSPNOEA [None]
  - EATING DISORDER [None]
  - SOMNOLENCE [None]
